FAERS Safety Report 4588253-0 (Version None)
Quarter: 2005Q1

REPORT INFORMATION
  Report Type: 
  Country: None (occurrence: None)
  Receive Date: 20050221
  Receipt Date: 20050211
  Transmission Date: 20050727
  Serious: Yes (Life-Threatening, Hospitalization)
  Sender: FDA-Public Use
  Company Number: DE-ABBOTT-05P-062-0290456-00

PATIENT
  Sex: Female
  Weight: 100 kg

DRUGS (4)
  1. HUMIRA [Suspect]
     Indication: RHEUMATOID ARTHRITIS
     Route: 058
     Dates: start: 20031120, end: 20041216
  2. AZATHIOPRINE [Suspect]
     Indication: RHEUMATOID ARTHRITIS
     Route: 048
     Dates: start: 20041202, end: 20050105
  3. AZATHIOPRINE [Suspect]
     Indication: IRITIS
  4. PREDNISOLONE [Concomitant]
     Indication: RHEUMATOID ARTHRITIS
     Route: 048
     Dates: start: 19740101, end: 20050101

REACTIONS (4)
  - CLOSTRIDIUM COLITIS [None]
  - PNEUMONIA [None]
  - RENAL FAILURE [None]
  - SHOCK [None]
